FAERS Safety Report 9311959 (Version 4)
Quarter: 2013Q4

REPORT INFORMATION
  Report Type: Report from Study
  Country: AT (occurrence: AT)
  Receive Date: 20130528
  Receipt Date: 20131227
  Transmission Date: 20140711
  Serious: Yes (Hospitalization, Other)
  Sender: FDA-Public Use
  Company Number: AT-ASTELLAS-2013US005545

PATIENT
  Age: 54 Year
  Sex: Male
  Weight: 91 kg

DRUGS (11)
  1. ERLOTINIB TABLET [Suspect]
     Indication: PRODUCT USED FOR UNKNOWN INDICATION
     Dosage: 150 MG, UID/QD
     Route: 048
     Dates: start: 20130411
  2. ERLOTINIB TABLET [Suspect]
     Dosage: 150 MG, UID/QD
     Route: 048
  3. BEVACIZUMAB [Suspect]
     Indication: LUNG NEOPLASM MALIGNANT
     Dosage: 600 MG, Q3W
     Route: 042
     Dates: start: 20121115
  4. HYDAL [Concomitant]
     Indication: PRODUCT USED FOR UNKNOWN INDICATION
     Dosage: 8 MG, UID/QD
     Route: 065
     Dates: start: 20130516, end: 20130526
  5. HYDAL [Concomitant]
     Dosage: 2, 6 MG, DAILY AS NEEDED
     Dates: start: 20130527
  6. HYDAL [Concomitant]
     Dosage: UNK
     Route: 065
  7. NOVALGIN                           /00169801/ [Concomitant]
     Indication: PRODUCT USED FOR UNKNOWN INDICATION
     Dosage: 45 DROPS, UID/QD
     Route: 065
  8. CAL-D-VITA [Concomitant]
     Indication: PRODUCT USED FOR UNKNOWN INDICATION
     Dosage: 2 DF, UID/QD
     Route: 065
  9. AKTIFERRIN                         /00631201/ [Concomitant]
     Indication: PRODUCT USED FOR UNKNOWN INDICATION
     Dosage: 1 DF, UID/QD
     Route: 065
  10. THROMBO ASS [Concomitant]
     Indication: PRODUCT USED FOR UNKNOWN INDICATION
     Dosage: 100 MG, UID/QD
     Route: 065
  11. DRONABINOL [Concomitant]
     Indication: PRODUCT USED FOR UNKNOWN INDICATION
     Dosage: 9 DROPS, UID/QD
     Route: 065

REACTIONS (3)
  - Hypocalcaemia [Unknown]
  - Tetany [Recovered/Resolved]
  - Convulsion [Recovering/Resolving]
